FAERS Safety Report 14255907 (Version 1)
Quarter: 2017Q4

REPORT INFORMATION
  Report Type: Spontaneous
  Country: US (occurrence: None)
  Receive Date: 20171206
  Receipt Date: 20171206
  Transmission Date: 20180321
  Serious: Yes (Other)
  Sender: FDA-Public Use
  Company Number: None

PATIENT
  Age: 77 Year
  Sex: Female
  Weight: 58.06 kg

DRUGS (18)
  1. XALKORI [Suspect]
     Active Substance: CRIZOTINIB
     Indication: LUNG NEOPLASM MALIGNANT
     Route: 048
     Dates: start: 20171104
  2. HCTZ [Concomitant]
     Active Substance: HYDROCHLOROTHIAZIDE
  3. PEPTO-BISMOL [Concomitant]
     Active Substance: BISMUTH SUBSALICYLATE
  4. TRIAMCINOLONE [Concomitant]
     Active Substance: TRIAMCINOLONE
  5. IMODIUM A-D [Concomitant]
     Active Substance: LOPERAMIDE HYDROCHLORIDE
  6. TERAZOSIN [Concomitant]
     Active Substance: TERAZOSIN\TERAZOSIN HYDROCHLORIDE
  7. DIAZEPAM. [Concomitant]
     Active Substance: DIAZEPAM
  8. VITAMIN D3 [Concomitant]
     Active Substance: CHOLECALCIFEROL
  9. PAROXETINE. [Concomitant]
     Active Substance: PAROXETINE
  10. ATENOLOL. [Concomitant]
     Active Substance: ATENOLOL
  11. CALCIUM WITH D [Concomitant]
     Active Substance: CALCIUM\VITAMIN D
  12. NORCO [Concomitant]
     Active Substance: ACETAMINOPHEN\HYDROCODONE BITARTRATE
  13. NEOMYCIN/POLYMICIN [Concomitant]
  14. LETROZOLE. [Concomitant]
     Active Substance: LETROZOLE
  15. LOSARTAN. [Concomitant]
     Active Substance: LOSARTAN
  16. CORMAX [Concomitant]
     Active Substance: CLOBETASOL PROPIONATE
  17. SIMVASTATIN. [Concomitant]
     Active Substance: SIMVASTATIN
  18. SYSTANE (HYPROMELLOSE 2910 (4000 MPA.S)) [Concomitant]
     Active Substance: HYPROMELLOSE 2910 (4000 MPA.S)

REACTIONS (4)
  - Constipation [None]
  - Diarrhoea [None]
  - Hypotension [None]
  - Asthenia [None]

NARRATIVE: CASE EVENT DATE: 20171106
